FAERS Safety Report 8785819 (Version 1)
Quarter: 2012Q4

REPORT INFORMATION
  Report Type: 
  Country: US (occurrence: US)
  Receive Date: 20120914
  Receipt Date: 20120914
  Transmission Date: 20130627
  Serious: No
  Sender: FDA-Public Use
  Company Number: US-MYLANLABS-2012S1011806

PATIENT
  Age: 56 Year
  Sex: Female
  Weight: 58.97 kg

DRUGS (9)
  1. CLOPIDOGREL TABLETS USP [Suspect]
     Indication: MYOCARDIAL INFARCTION
     Route: 048
     Dates: start: 20120607
  2. CARDIZEM [Concomitant]
     Indication: BLOOD PRESSURE INCREASED
     Dates: start: 201201
  3. FUROSEMIDE [Concomitant]
     Indication: FLUID RETENTION
     Dates: start: 201201
  4. ASA [Concomitant]
     Dates: start: 201201
  5. POTASSIUM [Concomitant]
     Dates: start: 201203
  6. LISINOPRIL AND HYDROCHLOROTHIAZIDE [Concomitant]
     Indication: BLOOD PRESSURE INCREASED
     Dosage: 20mg/25mg
     Dates: start: 201201
  7. TRAMADOL [Concomitant]
     Indication: FIBROMYALGIA
     Dates: start: 2010
  8. CETIRIZINE [Concomitant]
     Indication: MULTIPLE ALLERGIES
     Dates: start: 201204
  9. CLONAZEPAM [Concomitant]
     Indication: ANXIETY
     Dates: start: 201204

REACTIONS (1)
  - Paraesthesia [Not Recovered/Not Resolved]
